FAERS Safety Report 4469543-9 (Version None)
Quarter: 2004Q4

REPORT INFORMATION
  Report Type: 
  Country: None (occurrence: None)
  Receive Date: 20041005
  Receipt Date: 20041005
  Transmission Date: 20050328
  Serious: Yes (Life-Threatening, Hospitalization)
  Sender: FDA-Public Use
  Company Number: None

PATIENT
  Sex: Male

DRUGS (10)
  1. ZOSYN [Suspect]
     Indication: SKIN ULCER
     Dosage: 2.25 GM   Q 6 HR   INTRAVENOU
     Route: 042
     Dates: start: 20040415, end: 20040506
  2. OXYCODONE HCL [Concomitant]
  3. SENNA [Concomitant]
  4. OMEPRAZOLE [Concomitant]
  5. NEPHROCAPS [Concomitant]
  6. LISINOPRIL [Concomitant]
  7. INSULIN [Concomitant]
  8. FERROUS SULFATE TAB [Concomitant]
  9. DOCUSATE [Concomitant]
  10. ASPIRIN [Concomitant]

REACTIONS (1)
  - NEUTROPENIA [None]
